FAERS Safety Report 4946904-2 (Version None)
Quarter: 2006Q1

REPORT INFORMATION
  Report Type: 
  Country: None (occurrence: None)
  Receive Date: 20060201
  Receipt Date: 20051208
  Transmission Date: 20060701
  Serious: No
  Sender: FDA-Public Use
  Company Number: 2005PV005640

PATIENT
  Sex: Female

DRUGS (2)
  1. BYETTA [Suspect]
     Indication: DRUG USE FOR UNKNOWN INDICATION
     Dosage: 10 MCG;BID;SC   5 MCG;BID;SC
     Route: 058
     Dates: start: 20050701, end: 20050901
  2. BYETTA [Suspect]
     Indication: DRUG USE FOR UNKNOWN INDICATION
     Dosage: 10 MCG;BID;SC   5 MCG;BID;SC
     Route: 058
     Dates: start: 20050901

REACTIONS (3)
  - INJECTION SITE BRUISING [None]
  - INJECTION SITE IRRITATION [None]
  - INJECTION SITE PAIN [None]
